FAERS Safety Report 22949396 (Version 2)
Quarter: 2023Q4

REPORT INFORMATION
  Report Type: Spontaneous
  Country: US (occurrence: US)
  Receive Date: 20230915
  Receipt Date: 20231002
  Transmission Date: 20240110
  Serious: No
  Sender: FDA-Public Use
  Company Number: US-Calliditas-2023CAL01170

PATIENT
  Age: 39 Year
  Sex: Female
  Weight: 96.71 kg

DRUGS (1)
  1. TARPEYO [Suspect]
     Active Substance: BUDESONIDE
     Indication: IgA nephropathy
     Dosage: 4 MG (4 MG CAPSULES) ONCE DAILY
     Route: 048
     Dates: start: 20230424

REACTIONS (7)
  - Accidental overdose [Recovered/Resolved]
  - Somnolence [Unknown]
  - Inappropriate schedule of product administration [Unknown]
  - Psychomotor hyperactivity [Unknown]
  - Prescribed underdose [Unknown]
  - Insomnia [Unknown]
  - Restlessness [Unknown]

NARRATIVE: CASE EVENT DATE: 20230910
